FAERS Safety Report 4844596-4 (Version None)
Quarter: 2005Q4

REPORT INFORMATION
  Report Type: 
  Country: None (occurrence: None)
  Receive Date: 20051129
  Receipt Date: 20051108
  Transmission Date: 20060501
  Serious: Yes (Hospitalization)
  Sender: FDA-Public Use
  Company Number: JP_051108042

PATIENT
  Age: 7 Year
  Sex: Male
  Weight: 20 kg

DRUGS (2)
  1. HUMATROPE [Suspect]
     Indication: GROWTH HORMONE DEFICIENCY
     Dosage: SEE IMAGE
     Route: 058
     Dates: start: 20031218, end: 20050801
  2. HUMATROPE [Suspect]
     Indication: GROWTH HORMONE DEFICIENCY
     Dosage: SEE IMAGE
     Route: 058
     Dates: start: 20050801, end: 20051031

REACTIONS (5)
  - CROUP INFECTIOUS [None]
  - NEPHROTIC SYNDROME [None]
  - OEDEMA [None]
  - OLIGURIA [None]
  - RHINORRHOEA [None]
